FAERS Safety Report 22014754 (Version 1)
Quarter: 2023Q1

REPORT INFORMATION
  Report Type: Spontaneous
  Country: US (occurrence: None)
  Receive Date: 20230221
  Receipt Date: 20230221
  Transmission Date: 20230418
  Serious: Yes (Death, Hospitalization, Other)
  Sender: FDA-Public Use
  Company Number: None

PATIENT
  Age: 69 Year
  Sex: Female

DRUGS (6)
  1. AMPICILLIN [Suspect]
     Active Substance: AMPICILLIN
     Indication: Enterococcal infection
     Dosage: SUSPENDED DRUG AND AFTER RESUMED  HER ANTIBIOTICS WERE CHANGED TO VANCOMYCIN AND...
  2. PIPERACILLIN AND TAZOBACTAM [Suspect]
     Active Substance: PIPERACILLIN SODIUM\TAZOBACTAM SODIUM
     Dosage: ADDITIONALLY, HER ANTIBIOTICS WERE CHANGED TO VANCOMYCIN AND PIPERACILLIN/TAZOBACTAM
  3. VANCOMYCIN [Suspect]
     Active Substance: VANCOMYCIN
  4. CEFTRIAXONE [Suspect]
     Active Substance: CEFTRIAXONE
  5. CEFEPIME [Suspect]
     Active Substance: CEFEPIME HYDROCHLORIDE
  6. METRONIDAZOLE [Suspect]
     Active Substance: METRONIDAZOLE

REACTIONS (12)
  - Differential white blood cell count abnormal [Fatal]
  - Pericardial effusion [Fatal]
  - Subarachnoid haemorrhage [Fatal]
  - Septic embolus [Fatal]
  - Endocarditis [Fatal]
  - Perforation [Fatal]
  - Peritonitis [Fatal]
  - Pyrexia [Fatal]
  - Stenotrophomonas infection [Fatal]
  - Renal injury [Fatal]
  - Cardiogenic shock [Fatal]
  - Multiple organ dysfunction syndrome [Fatal]
